FAERS Safety Report 4712255-4 (Version None)
Quarter: 2005Q3

REPORT INFORMATION
  Report Type: 
  Country: None (occurrence: None)
  Receive Date: 20050712
  Receipt Date: 20050620
  Transmission Date: 20060218
  Serious: Yes (Hospitalization)
  Sender: FDA-Public Use
  Company Number: US-GLAXOSMITHKLINE-B0385006A

PATIENT
  Age: 57 Year
  Sex: Female

DRUGS (6)
  1. AVANDIA [Suspect]
     Route: 048
  2. LEVOTHYROXINE [Concomitant]
     Dosage: 100MG PER DAY
     Route: 065
  3. ROSUVASTATIN [Concomitant]
     Dosage: 10MG PER DAY
     Route: 065
  4. EPROSARTAN [Concomitant]
     Dosage: 300MG PER DAY
     Route: 065
  5. EZETIMIBE [Concomitant]
     Dosage: 10MG PER DAY
  6. FUROSEMIDE [Concomitant]
     Dosage: 40MG PER DAY

REACTIONS (2)
  - PHARMACEUTICAL PRODUCT COMPLAINT [None]
  - RENAL HAEMORRHAGE [None]
